FAERS Safety Report 4962979-9 (Version None)
Quarter: 2006Q1

REPORT INFORMATION
  Report Type: 
  Country: None (occurrence: None)
  Receive Date: 20060331
  Receipt Date: 20060316
  Transmission Date: 20060701
  Serious: Yes (Hospitalization)
  Sender: FDA-Public Use
  Company Number: DE-2006-003772

PATIENT
  Age: 42 Year
  Sex: Male
  Weight: 68 kg

DRUGS (2)
  1. BETAFERON (INTERFERON BETA -1B) INJECTION, 250UG [Suspect]
     Indication: MULTIPLE SCLEROSIS
     Dosage: EVERY 2D, SUBCUTANEOUS
     Route: 058
     Dates: start: 19961119, end: 20050701
  2. CITALOPRAM (CITALOPRAM) [Concomitant]

REACTIONS (4)
  - BONE MARROW DISORDER [None]
  - DRUG INTOLERANCE [None]
  - PULMONARY SARCOIDOSIS [None]
  - SPLEEN DISORDER [None]
